FAERS Safety Report 24951978 (Version 1)
Quarter: 2025Q1

REPORT INFORMATION
  Report Type: Spontaneous
  Country: US (occurrence: None)
  Receive Date: 20250207
  Receipt Date: 20250207
  Transmission Date: 20250408
  Serious: No
  Sender: FDA-CTU
  Company Number: None

PATIENT
  Age: 31 Year
  Sex: Female

DRUGS (2)
  1. RINVOQ [Suspect]
     Active Substance: UPADACITINIB
     Dosage: FREQUENCY : DAILY;?
     Route: 048
     Dates: start: 20241016, end: 20250116
  2. RINVOQ [Concomitant]
     Active Substance: UPADACITINIB
     Dates: start: 20241016, end: 20250116

REACTIONS (3)
  - Pruritus [None]
  - Skin disorder [None]
  - Pruritus [None]
